FAERS Safety Report 8555169-4 (Version None)
Quarter: 2012Q3

REPORT INFORMATION
  Report Type: 
  Country: None (occurrence: None)
  Receive Date: 20120731
  Receipt Date: 20120720
  Transmission Date: 20120928
  Serious: Yes (Other)
  Sender: FDA-Public Use
  Company Number: JP-FRI-1000037220

PATIENT
  Sex: Male
  Weight: 65 kg

DRUGS (5)
  1. VEGETAMIN-B [Concomitant]
     Indication: INSOMNIA
     Dosage: 1 DF
     Route: 048
     Dates: start: 20120119, end: 20120412
  2. LEXAPRO [Suspect]
     Dosage: 10 MG
     Route: 048
     Dates: start: 20120330, end: 20120412
  3. DEPAS [Concomitant]
     Indication: DEPRESSION
     Dosage: 1 MG
     Route: 048
     Dates: start: 20111202, end: 20120412
  4. LEXAPRO [Suspect]
     Indication: DEPRESSION
     Dosage: 20 MG
     Route: 048
     Dates: start: 20111003, end: 20120329
  5. ROHYPNOL [Concomitant]
     Indication: INSOMNIA
     Dosage: 2 MG
     Route: 048
     Dates: start: 20120203, end: 20120412

REACTIONS (1)
  - ACTIVATION SYNDROME [None]
